FAERS Safety Report 21708697 (Version 1)
Quarter: 2022Q4

REPORT INFORMATION
  Report Type: Spontaneous
  Country: DE (occurrence: DE)
  Receive Date: 20221210
  Receipt Date: 20221210
  Transmission Date: 20230112
  Serious: Yes (Disabling, Other)
  Sender: FDA-Public Use
  Company Number: DE-SA-SAC20221029001107

PATIENT
  Age: 58 Year
  Sex: Male

DRUGS (1)
  1. TERIFLUNOMIDE [Suspect]
     Active Substance: TERIFLUNOMIDE
     Indication: Multiple sclerosis
     Dosage: 14 MG, QD
     Route: 048
     Dates: start: 202207

REACTIONS (7)
  - Deafness [Not Recovered/Not Resolved]
  - Pruritus [Recovering/Resolving]
  - Miliaria [Recovering/Resolving]
  - Hypoaesthesia [Recovering/Resolving]
  - Headache [Not Recovered/Not Resolved]
  - Paraesthesia [Recovering/Resolving]
  - Alopecia [Not Recovered/Not Resolved]
